FAERS Safety Report 7315237-1 (Version None)
Quarter: 2011Q1

REPORT INFORMATION
  Report Type: 
  Country: None (occurrence: None)
  Receive Date: 20110225
  Receipt Date: 20110215
  Transmission Date: 20110831
  Serious: Yes (Hospitalization, Other)
  Sender: FDA-Public Use
  Company Number: CA-JNJFOC-20100906521

PATIENT
  Sex: Female
  Weight: 68.04 kg

DRUGS (12)
  1. IMDUR [Concomitant]
     Indication: HYPERTENSION
  2. FOLIC ACID [Concomitant]
     Indication: HYPERTENSION
  3. SYNTHROID [Concomitant]
     Indication: HYPERTHYROIDISM
  4. HYDROMORPHONE [Concomitant]
     Indication: PAIN
  5. STELARA [Suspect]
     Indication: PSORIASIS
     Route: 058
  6. DILAUDID [Concomitant]
     Indication: PAIN
  7. PAROXETINE [Concomitant]
     Indication: HYPERTENSION
  8. CRESTOR [Concomitant]
     Indication: HYPERLIPIDAEMIA
  9. ALDACTONE [Concomitant]
  10. FUROSEMIDE [Concomitant]
     Indication: CARDIAC FAILURE CONGESTIVE
  11. DILTIAZEM [Concomitant]
     Indication: HYPERTENSION
  12. BRIMONIDINE TARTRATE [Concomitant]
     Indication: PAIN

REACTIONS (3)
  - CARDIAC FAILURE CONGESTIVE [None]
  - PNEUMONIA [None]
  - RENAL DISORDER [None]
